FAERS Safety Report 11306716 (Version 1)
Quarter: 2015Q3

REPORT INFORMATION
  Report Type: Spontaneous
  Country: US (occurrence: US)
  Receive Date: 20150723
  Receipt Date: 20150723
  Transmission Date: 20151125
  Serious: Yes (Other)
  Sender: FDA-Public Use
  Company Number: US-ASTELLAS-2015US011951

PATIENT

DRUGS (1)
  1. MYRBETRIQ [Suspect]
     Active Substance: MIRABEGRON
     Indication: BLADDER SPASM
     Dosage: UNK, UNKNOWN FREQ.
     Route: 065

REACTIONS (4)
  - Chromaturia [Unknown]
  - Product use issue [Unknown]
  - Urine odour abnormal [Unknown]
  - Urinary retention [Unknown]
